FAERS Safety Report 6984226-9 (Version None)
Quarter: 2010Q3

REPORT INFORMATION
  Report Type: 
  Country: None (occurrence: None)
  Receive Date: 20100915
  Receipt Date: 20100907
  Transmission Date: 20110219
  Serious: Yes (Hospitalization)
  Sender: FDA-Public Use
  Company Number: 2006BI011263

PATIENT
  Age: 35 Year
  Sex: Female

DRUGS (1)
  1. AVONEX [Suspect]
     Indication: MULTIPLE SCLEROSIS
     Route: 030
     Dates: start: 20050901, end: 20051201

REACTIONS (3)
  - FEAR OF NEEDLES [None]
  - INFLUENZA LIKE ILLNESS [None]
  - LUNG NEOPLASM MALIGNANT [None]
